FAERS Safety Report 8362893-5 (Version None)
Quarter: 2012Q2

REPORT INFORMATION
  Report Type: 
  Country: None (occurrence: None)
  Receive Date: 20120514
  Receipt Date: 20120503
  Transmission Date: 20120825
  Serious: Yes (Hospitalization)
  Sender: FDA-Public Use
  Company Number: CM12-0022

PATIENT
  Weight: 2.0865 kg

DRUGS (2)
  1. PHYTONADIONE [Suspect]
     Indication: VITAMIN K DEFICIENCY
     Dosage: INJECTION
     Dates: start: 20120424
  2. PHYTONADIONE [Suspect]
     Indication: PROPHYLAXIS
     Dosage: INJECTION
     Dates: start: 20120424

REACTIONS (1)
  - HAEMORRHAGE [None]
